FAERS Safety Report 8547474-2 (Version None)
Quarter: 2012Q3

REPORT INFORMATION
  Report Type: 
  Country: None (occurrence: None)
  Receive Date: 20120727
  Receipt Date: 20120419
  Transmission Date: 20120928
  Serious: No
  Sender: FDA-Public Use
  Company Number: US-ASTRAZENECA-2012SE26244

PATIENT
  Age: 14 Year
  Sex: Male
  Weight: 56.7 kg

DRUGS (13)
  1. SEROQUEL [Suspect]
     Route: 048
  2. SEROQUEL [Suspect]
     Indication: BIPOLAR DISORDER
     Dosage: 400 MG IN THE EVENING AND 20 MG IN THE MORNING
     Route: 048
  3. INTUNIV [Concomitant]
     Indication: ATTENTION DEFICIT/HYPERACTIVITY DISORDER
  4. INTUNIV [Concomitant]
     Indication: PSYCHOMOTOR HYPERACTIVITY
  5. SEROQUEL [Suspect]
     Dosage: 400 MG IN THE EVENING AND 20 MG IN THE MORNING
     Route: 048
  6. SEROQUEL [Suspect]
     Indication: ASPERGER'S DISORDER
     Dosage: 400 MG IN THE EVENING AND 20 MG IN THE MORNING
     Route: 048
  7. SEROQUEL [Suspect]
     Indication: AGGRESSION
     Dosage: 400 MG IN THE EVENING AND 20 MG IN THE MORNING
     Route: 048
  8. SEROQUEL [Suspect]
     Dosage: 400 MG IN THE EVENING AND 20 MG IN THE MORNING
     Route: 048
  9. SEROQUEL [Suspect]
     Route: 048
  10. SEROQUEL [Suspect]
     Route: 048
  11. SEROQUEL [Suspect]
     Dosage: 400 MG IN THE EVENING AND 20 MG IN THE MORNING
     Route: 048
  12. PROZAC [Concomitant]
     Indication: IMPULSIVE BEHAVIOUR
  13. PROZAC [Concomitant]
     Indication: ANXIOLYTIC THERAPY

REACTIONS (7)
  - EXCESSIVE EYE BLINKING [None]
  - SOMNOLENCE [None]
  - FATIGUE [None]
  - BLEPHAROSPASM [None]
  - EYE MOVEMENT DISORDER [None]
  - WEIGHT INCREASED [None]
  - DYSKINESIA [None]
